FAERS Safety Report 25178817 (Version 1)
Quarter: 2025Q2

REPORT INFORMATION
  Report Type: Spontaneous
  Country: US (occurrence: None)
  Receive Date: 20250408
  Receipt Date: 20250408
  Transmission Date: 20250716
  Serious: Yes (Disabling, Other)
  Sender: FDA-CTU
  Company Number: None

PATIENT
  Age: 40 Year
  Sex: Male
  Weight: 78.3 kg

DRUGS (1)
  1. FINASTERIDE [Suspect]
     Active Substance: FINASTERIDE
     Dates: start: 20220101, end: 20220601

REACTIONS (2)
  - Sexual dysfunction [None]
  - Orgasm abnormal [None]

NARRATIVE: CASE EVENT DATE: 20220601
